FAERS Safety Report 21593014 (Version 1)
Quarter: 2022Q4

REPORT INFORMATION
  Report Type: Report from Study
  Country: US (occurrence: US)
  Receive Date: 20221114
  Receipt Date: 20221114
  Transmission Date: 20230112
  Serious: Yes (Hospitalization, Other)
  Sender: FDA-Public Use
  Company Number: US-ABBVIE-22K-163-4433396-00

PATIENT
  Sex: Female

DRUGS (3)
  1. HUMIRA [Suspect]
     Active Substance: ADALIMUMAB
     Indication: Hidradenitis
     Dosage: FORM STRENGTH: 80 MG
     Route: 058
     Dates: start: 2017, end: 2018
  2. HUMIRA [Suspect]
     Active Substance: ADALIMUMAB
     Route: 058
     Dates: start: 20220624, end: 2022
  3. JANSSEN COVID-19 VACCINE [Concomitant]
     Active Substance: AD26.COV2.S
     Indication: COVID-19 immunisation
     Dosage: TIME INTERVAL: 1 TOTAL
     Route: 030

REACTIONS (12)
  - Surgery [Unknown]
  - Bronchitis [Recovered/Resolved]
  - White blood cell count increased [Unknown]
  - Skin odour abnormal [Not Recovered/Not Resolved]
  - Full blood count decreased [Unknown]
  - Walking aid user [Unknown]
  - White blood cell count abnormal [Unknown]
  - Food allergy [Unknown]
  - Bronchitis [Recovered/Resolved]
  - Bronchitis [Recovered/Resolved]
  - Asthma [Unknown]
  - Infection [Unknown]

NARRATIVE: CASE EVENT DATE: 20220101
